FAERS Safety Report 11857620 (Version 1)
Quarter: 2015Q4

REPORT INFORMATION
  Report Type: Spontaneous
  Country: US (occurrence: None)
  Receive Date: 20151221
  Receipt Date: 20151221
  Transmission Date: 20160305
  Serious: Yes (Hospitalization)
  Sender: FDA-Public Use
  Company Number: None

PATIENT
  Age: 60 Year
  Sex: Male
  Weight: 98 kg

DRUGS (1)
  1. CLOZAPINE (MYLAN) [Suspect]
     Active Substance: CLOZAPINE
     Indication: SCHIZOPHRENIA, PARANOID TYPE
     Dosage: MG
     Route: 048
     Dates: start: 20010129, end: 20150810

REACTIONS (3)
  - Ileus paralytic [None]
  - Constipation [None]
  - Small intestinal obstruction [None]

NARRATIVE: CASE EVENT DATE: 20150810
